FAERS Safety Report 25318327 (Version 1)
Quarter: 2025Q2

REPORT INFORMATION
  Report Type: Spontaneous
  Country: IT (occurrence: IT)
  Receive Date: 20250515
  Receipt Date: 20250515
  Transmission Date: 20250716
  Serious: Yes (Life-Threatening, Hospitalization)
  Sender: MYLAN
  Company Number: IT-MYLANLABS-2025M1041113

PATIENT
  Age: 5 Year
  Sex: Male

DRUGS (5)
  1. BUSULFAN [Suspect]
     Active Substance: BUSULFAN
     Indication: Bone marrow conditioning regimen
  2. SILDENAFIL [Suspect]
     Active Substance: SILDENAFIL
     Indication: Pulmonary arterial hypertension
     Dosage: 10 MILLIGRAM, TID
  3. FUROSEMIDE [Suspect]
     Active Substance: FUROSEMIDE
     Indication: Pulmonary arterial hypertension
     Dosage: 2 MILLIGRAM/KILOGRAM, QD
  4. MILRINONE [Suspect]
     Active Substance: MILRINONE
     Indication: Pulmonary arterial hypertension
     Dosage: 0.5 MICROGRAM/KILOGRAM, QMINUTE
  5. MELPHALAN [Concomitant]
     Active Substance: MELPHALAN
     Indication: Bone marrow conditioning regimen

REACTIONS (7)
  - Pulmonary arterial hypertension [Recovering/Resolving]
  - Tricuspid valve incompetence [Recovered/Resolved]
  - Right ventricular dysfunction [Recovered/Resolved]
  - Cardiac failure chronic [Recovering/Resolving]
  - Cardiomegaly [Recovered/Resolved]
  - Cardiogenic shock [Recovering/Resolving]
  - Drug ineffective [Unknown]
